FAERS Safety Report 16940572 (Version 1)
Quarter: 2019Q4

REPORT INFORMATION
  Report Type: Spontaneous
  Country: US (occurrence: US)
  Receive Date: 20190828
  Receipt Date: 20190828
  Transmission Date: 20200122
  Serious: Yes (Hospitalization)
  Sender: FDA-Public Use
  Company Number: None

PATIENT
  Age: 68 Year
  Sex: Male

DRUGS (1)
  1. NIVOLUMAB [Suspect]
     Active Substance: NIVOLUMAB
     Indication: NEUTROPENIA
     Route: 042
     Dates: start: 20190418, end: 20190517

REACTIONS (3)
  - Sepsis [None]
  - Dialysis [None]
  - Febrile neutropenia [None]

NARRATIVE: CASE EVENT DATE: 20190616
